FAERS Safety Report 7126309-9 (Version None)
Quarter: 2010Q4

REPORT INFORMATION
  Report Type: 
  Country: None (occurrence: None)
  Receive Date: 20101129
  Receipt Date: 20100122
  Transmission Date: 20110411
  Serious: No
  Sender: FDA-Public Use
  Company Number: A0833179A

PATIENT
  Age: 87 Year
  Sex: Female

DRUGS (2)
  1. LANOXIN [Suspect]
     Indication: TACHYCARDIA
     Dosage: .125MG PER DAY
     Route: 048
  2. MULTI-VITAMIN [Concomitant]

REACTIONS (5)
  - DRUG LEVEL BELOW THERAPEUTIC [None]
  - HEART RATE INCREASED [None]
  - OVERDOSE [None]
  - PRODUCT QUALITY ISSUE [None]
  - VISUAL IMPAIRMENT [None]
